FAERS Safety Report 20049731 (Version 1)
Quarter: 2021Q4

REPORT INFORMATION
  Report Type: Spontaneous
  Country: FR (occurrence: FR)
  Receive Date: 20211109
  Receipt Date: 20211109
  Transmission Date: 20220303
  Serious: Yes (Hospitalization)
  Sender: FDA-Public Use
  Company Number: None

PATIENT
  Age: 75 Year
  Sex: Female
  Weight: 60 kg

DRUGS (1)
  1. KEYTRUDA [Suspect]
     Active Substance: PEMBROLIZUMAB
     Indication: Endometrial cancer
     Dosage: UNK; POWDER FOR SOLUTION TO DILUTE FOR INFUSION
     Dates: start: 20210507

REACTIONS (3)
  - Arthralgia [Recovered/Resolved]
  - Rash maculo-papular [Recovered/Resolved]
  - Synovitis [Recovered/Resolved]

NARRATIVE: CASE EVENT DATE: 20210601
